FAERS Safety Report 9708369 (Version 1)
Quarter: 2013Q4

REPORT INFORMATION
  Report Type: Report from Study
  Country: GR (occurrence: GR)
  Receive Date: 20131125
  Receipt Date: 20131125
  Transmission Date: 20140711
  Serious: Yes (Death)
  Sender: FDA-Public Use
  Company Number: GR-SA-2013SA121658

PATIENT
  Sex: Female

DRUGS (7)
  1. DOCETAXEL [Suspect]
     Indication: BREAST CANCER METASTATIC
     Dosage: ON DAY 1 OF 21 DAY CYCLE OVER 30 MIN
     Route: 042
  2. DOCETAXEL [Suspect]
     Indication: BREAST CANCER METASTATIC
     Dosage: ON DAY 1 OF 21 DAY CYCLE OVER 30 MIN
     Route: 042
  3. EPIRUBICIN [Suspect]
     Indication: BREAST CANCER METASTATIC
     Dosage: ON DAY 1 OF 21-DAY CYCLE OVER 10 MIN
     Route: 042
  4. EPIRUBICIN [Suspect]
     Indication: BREAST CANCER METASTATIC
     Dosage: ON DAY 1 OF 21-DAY CYCLE OVER 10 MIN
     Route: 042
  5. BEVACIZUMAB [Suspect]
     Indication: BREAST CANCER METASTATIC
     Dosage: ON DAY 1 OF 21-DAY CYCLE OVER 60-MIN
     Route: 042
  6. BEVACIZUMAB [Suspect]
     Indication: BREAST CANCER METASTATIC
     Dosage: ON DAY 1 OF 21-DAY CYCLE OVER 60-MIN
     Route: 042
  7. GRANULOCYTE COLONY-STIMULATING FACTOR NOS [Concomitant]
     Indication: PROPHYLAXIS

REACTIONS (1)
  - Sudden death [Fatal]
